FAERS Safety Report 9231266 (Version 2)
Quarter: 2013Q2

REPORT INFORMATION
  Report Type: Spontaneous
  Country: US (occurrence: None)
  Receive Date: 20121031
  Receipt Date: 20130107
  Transmission Date: 20140414
  Serious: Yes (Other)
  Sender: FDA-Public Use
  Company Number: PHEH2012US015921

PATIENT
  Age: 56 Year
  Sex: Female
  Weight: 76.2 kg

DRUGS (8)
  1. GILENYA (FTY) CAPSULE, 0.5MG [Suspect]
     Indication: MULTIPLE SCLEROSIS
     Route: 048
     Dates: start: 20111128, end: 20120810
  2. LISINOPRIL W/HYDROCHLOROTHIAZIDE (HYDROCHLOROTHIAZIDE LISINOPRIL) [Concomitant]
  3. METOPROLOL TARTRATE (METOPROLOL TARTRATE) [Concomitant]
  4. ASPIRIN (ACETYLSALICYLIC ACID) [Suspect]
  5. GABAPENTIN (GABAPENTIN) [Concomitant]
  6. RANITIDINE (RANITIDINE) [Concomitant]
  7. IBUPROFEN (IBUPROFEN) [Suspect]
  8. VITAMIN D3 (COLECALCIFEROL) [Concomitant]

REACTIONS (4)
  - Renal impairment [None]
  - Multiple sclerosis relapse [None]
  - Liver function test abnormal [None]
  - Fatigue [None]
